FAERS Safety Report 17698893 (Version 4)
Quarter: 2020Q3

REPORT INFORMATION
  Report Type: Report from Study
  Country: GB (occurrence: GB)
  Receive Date: 20200423
  Receipt Date: 20200701
  Transmission Date: 20201102
  Serious: Yes (Other)
  Sender: FDA-Public Use
  Company Number: NVSC2020GB108537

PATIENT
  Age: 50 Year
  Sex: Male

DRUGS (3)
  1. COSENTYX [Suspect]
     Active Substance: SECUKINUMAB
     Indication: PSORIATIC ARTHROPATHY
     Dosage: 300 MG, UNKNOWN
     Route: 058
     Dates: start: 20200114
  2. RIVAROXABAN [Concomitant]
     Active Substance: RIVAROXABAN
     Indication: PRODUCT USED FOR UNKNOWN INDICATION
     Dosage: UNK
     Route: 065
  3. OMEPRAZOLE. [Concomitant]
     Active Substance: OMEPRAZOLE
     Indication: GASTROINTESTINAL DISORDER PROPHYLAXIS
     Dosage: 20 MG, QD
     Route: 048
     Dates: start: 20200407

REACTIONS (8)
  - Hot flush [Not Recovered/Not Resolved]
  - Feeling cold [Not Recovered/Not Resolved]
  - Diarrhoea [Recovering/Resolving]
  - Pain of skin [Not Recovered/Not Resolved]
  - Vomiting [Recovering/Resolving]
  - Deep vein thrombosis [Recovering/Resolving]
  - Nausea [Recovering/Resolving]
  - Anxiety [Recovering/Resolving]

NARRATIVE: CASE EVENT DATE: 20200402
